APPROVED DRUG PRODUCT: DUONEB
Active Ingredient: ALBUTEROL SULFATE; IPRATROPIUM BROMIDE
Strength: EQ 0.083% BASE;0.017% **Federal Register determination that product was not discontinued or withdrawn for safety or effectiveness reasons**
Dosage Form/Route: SOLUTION;INHALATION
Application: N020950 | Product #001
Applicant: PHARMOBEDIENT CONSULTING LLC
Approved: Mar 21, 2001 | RLD: Yes | RS: No | Type: DISCN